FAERS Safety Report 20904585 (Version 1)
Quarter: 2022Q2

REPORT INFORMATION
  Report Type: Spontaneous
  Country: IR (occurrence: IR)
  Receive Date: 20220602
  Receipt Date: 20220602
  Transmission Date: 20220720
  Serious: Yes (Life-Threatening, Hospitalization, Other)
  Sender: FDA-Public Use
  Company Number: IR-MACLEODS PHARMACEUTICALS US LTD-MAC2022035817

PATIENT

DRUGS (1)
  1. METFORMIN [Suspect]
     Active Substance: METFORMIN HYDROCHLORIDE
     Indication: Weight decreased
     Dosage: UNK (ABOUT 20?30 PILLS OF METFORMIN 500 MG DAILY IN THE PAST 3 YEARS AGO)
     Route: 065

REACTIONS (14)
  - Cardiotoxicity [Recovered/Resolved]
  - Pancytopenia [Recovered/Resolved]
  - Cardiomegaly [Recovered/Resolved]
  - Pleural effusion [Recovered/Resolved]
  - Anaemia megaloblastic [Recovered/Resolved]
  - Cardiogenic shock [Recovered/Resolved]
  - Acute kidney injury [Recovered/Resolved]
  - Hyponatraemia [Recovering/Resolving]
  - Neuropathy peripheral [Recovering/Resolving]
  - Acute kidney injury [Recovering/Resolving]
  - Toxicity to various agents [Recovering/Resolving]
  - Lactic acidosis [Recovered/Resolved]
  - Drug abuse [Recovered/Resolved]
  - Overdose [Recovered/Resolved]
